FAERS Safety Report 13624292 (Version 1)
Quarter: 2017Q2

REPORT INFORMATION
  Report Type: Spontaneous
  Country: US (occurrence: US)
  Receive Date: 20170607
  Receipt Date: 20170607
  Transmission Date: 20170830
  Serious: No
  Sender: FDA-Public Use
  Company Number: US-009507513-1706USA000209

PATIENT
  Sex: Male

DRUGS (2)
  1. IBUPROFEN. [Concomitant]
     Active Substance: IBUPROFEN
     Dosage: UNK
  2. SYLATRON [Suspect]
     Active Substance: PEGINTERFERON ALFA-2B
     Indication: MALIGNANT MELANOMA
     Dosage: 444 MICROGRAM, EVERY WEEK (QW)
     Route: 058

REACTIONS (1)
  - Influenza like illness [Unknown]
